FAERS Safety Report 6884607-8 (Version None)
Quarter: 2010Q3

REPORT INFORMATION
  Report Type: 
  Country: None (occurrence: None)
  Receive Date: 20100729
  Receipt Date: 20070816
  Transmission Date: 20110219
  Serious: Yes (Other)
  Sender: FDA-Public Use
  Company Number: US-PFIZER INC-2007045218

PATIENT
  Sex: Female
  Weight: 75 kg

DRUGS (4)
  1. CELEBREX [Suspect]
     Indication: ARTHRALGIA
     Dates: start: 20070501
  2. DITROPAN [Concomitant]
  3. ZYRTEC [Concomitant]
     Indication: HYPERSENSITIVITY
  4. LORTAB [Concomitant]
     Indication: ARTHRALGIA

REACTIONS (2)
  - GASTROINTESTINAL HAEMORRHAGE [None]
  - PAIN [None]
